FAERS Safety Report 11123413 (Version 4)
Quarter: 2015Q3

REPORT INFORMATION
  Report Type: Spontaneous
  Country: AU (occurrence: AU)
  Receive Date: 20150519
  Receipt Date: 20150702
  Transmission Date: 20151125
  Serious: Yes (Hospitalization)
  Sender: FDA-Public Use
  Company Number: AU-MUNDIPHARMA DS AND PHARMACOVIGILANCE-GBR-2015-0027760

PATIENT
  Age: 77 Year
  Sex: Female

DRUGS (14)
  1. ASPIRIN. [Concomitant]
     Active Substance: ASPIRIN
     Dosage: 100 MG, UNK
  2. NORSPAN [Suspect]
     Active Substance: BUPRENORPHINE
     Indication: PAIN MANAGEMENT
     Dosage: 5 MCG, Q1H
     Route: 062
     Dates: start: 20150323, end: 20150420
  3. IMURAN [Concomitant]
     Active Substance: AZATHIOPRINE
     Dosage: 100 MG, DAILY
  4. FOLIC ACID. [Concomitant]
     Active Substance: FOLIC ACID
     Dosage: 5 MG, DAILY
  5. MAGNESIUM [Concomitant]
     Active Substance: MAGNESIUM
     Dosage: 500 MG, QOD
  6. OSTELIN                            /00107901/ [Concomitant]
     Dosage: 25 MCG, QOD
  7. PARIET [Concomitant]
     Active Substance: RABEPRAZOLE SODIUM
     Dosage: 20 MG, BID
  8. ZINC [Concomitant]
     Active Substance: ZINC\ZINC CHLORIDE
  9. CALCIUM [Concomitant]
     Active Substance: CALCIUM
     Dosage: 1.2 G, QOD
  10. LIVIAL [Concomitant]
     Active Substance: TIBOLONE
     Dosage: 1.25 MG, QOD
  11. PROLIA [Concomitant]
     Active Substance: DENOSUMAB
     Dosage: UNK, ONCE IN SIX MONTHS
  12. METHOTREXATE [Concomitant]
     Active Substance: METHOTREXATE
     Dosage: 10 MG, WEEKLY
  13. PREDNISOLONE. [Concomitant]
     Active Substance: PREDNISOLONE
     Dosage: 10 MG, DAILY
  14. SYSTANE (HYPROMELLOSE 2910 (4000 MPA.S)) [Concomitant]
     Active Substance: HYPROMELLOSE 2910 (4000 MPA.S)

REACTIONS (5)
  - Abdominal distension [Unknown]
  - Rectal haemorrhage [Recovered/Resolved]
  - Faecaloma [Recovered/Resolved]
  - Constipation [Recovered/Resolved]
  - Bladder dysfunction [Recovered/Resolved]

NARRATIVE: CASE EVENT DATE: 20150330
